FAERS Safety Report 25028435 (Version 18)
Quarter: 2025Q4

REPORT INFORMATION
  Report Type: Spontaneous
  Country: CA (occurrence: CA)
  Receive Date: 20250302
  Receipt Date: 20251009
  Transmission Date: 20260118
  Serious: Yes (Other)
  Sender: ASTELLAS
  Company Number: CA-PFIZER INC-PV202500020522

PATIENT
  Age: 78 Year
  Sex: Female
  Weight: 52 kg

DRUGS (25)
  1. PADCEV [Suspect]
     Active Substance: ENFORTUMAB VEDOTIN-EJFV
     Indication: Transitional cell carcinoma metastatic
     Dosage: 65 MG, D1 + D8?POWDER FOR SOLUTION FOR INFUSION
     Route: 042
     Dates: start: 20250207
  2. PADCEV [Suspect]
     Active Substance: ENFORTUMAB VEDOTIN-EJFV
     Dosage: 65 MG, D1 + D8?POWDER FOR SOLUTION FOR INFUSION
     Route: 042
     Dates: start: 20250214
  3. PADCEV [Suspect]
     Active Substance: ENFORTUMAB VEDOTIN-EJFV
     Dosage: 81 MG D1 + D8?POWDER FOR SOLUTION FOR INFUSION
     Route: 042
     Dates: start: 20250221
  4. PADCEV [Suspect]
     Active Substance: ENFORTUMAB VEDOTIN-EJFV
     Dosage: 52 MG, FREQUENCY: D1 AND D8. INFUSION#3, CYCLE: 2?POWDER FOR SOLUTION FOR INFUSION
     Route: 042
     Dates: start: 20250314
  5. PADCEV [Suspect]
     Active Substance: ENFORTUMAB VEDOTIN-EJFV
     Dosage: 52 MG, FREQUENCY: D1 AND D8. INFUSION#3, CYCLE: 2?POWDER FOR SOLUTION FOR INFUSION
     Route: 042
     Dates: start: 20250321
  6. PADCEV [Suspect]
     Active Substance: ENFORTUMAB VEDOTIN-EJFV
     Dosage: 52 MG, DAY 1 AND DAY 8 OF 21-DAY CYCLE?POWDER FOR SOLUTION FOR INFUSION
     Route: 042
     Dates: start: 20250404
  7. PADCEV [Suspect]
     Active Substance: ENFORTUMAB VEDOTIN-EJFV
     Dosage: 52 MG, DAY 1 AND DAY 8 OF 21-DAY CYCLE?POWDER FOR SOLUTION FOR INFUSION
     Route: 042
     Dates: start: 20250411
  8. PADCEV [Suspect]
     Active Substance: ENFORTUMAB VEDOTIN-EJFV
     Dosage: 54 MG, DAY 1 AND 8, INFUSION #7?POWDER FOR SOLUTION FOR INFUSION
     Route: 042
     Dates: start: 20250425
  9. PADCEV [Suspect]
     Active Substance: ENFORTUMAB VEDOTIN-EJFV
     Dosage: 54 MG, DAY 1 AND 8, CYCLE 4, INFUSION #8?POWDER FOR SOLUTION FOR INFUSION
     Route: 042
     Dates: start: 20250502
  10. PADCEV [Suspect]
     Active Substance: ENFORTUMAB VEDOTIN-EJFV
     Dosage: 54 MG, DAY 1 AND 8, CYCLE 4, INFUSION #9?POWDER FOR SOLUTION FOR INFUSION
     Route: 042
     Dates: start: 20250516
  11. PADCEV [Suspect]
     Active Substance: ENFORTUMAB VEDOTIN-EJFV
     Dosage: 54 MG, DAY 1 AND 8, CYCLE 5, INFUSION #10?POWDER FOR SOLUTION FOR INFUSION
     Route: 042
     Dates: start: 20250523
  12. PADCEV [Suspect]
     Active Substance: ENFORTUMAB VEDOTIN-EJFV
     Dosage: 41 MG, CYCLIC, DAY 1 AND DAY 8 OF 21-DAY CYCLE?POWDER FOR SOLUTION FOR INFUSION
     Route: 042
     Dates: start: 20250606
  13. PADCEV [Suspect]
     Active Substance: ENFORTUMAB VEDOTIN-EJFV
     Dosage: 54 MG (DAY 1 AND DAY 8 OF 21-DAY CYCLE)?POWDER FOR SOLUTION FOR INFUSION
     Route: 042
     Dates: start: 20250613
  14. PADCEV [Suspect]
     Active Substance: ENFORTUMAB VEDOTIN-EJFV
     Dosage: 27 MG DAY 1 AND DAY 8 OF 21-DAY CYCLE?POWDER FOR SOLUTION FOR INFUSION
     Route: 042
     Dates: start: 20250627
  15. PADCEV [Suspect]
     Active Substance: ENFORTUMAB VEDOTIN-EJFV
     Dosage: 27 MG DAY 1 AND DAY 8 OF 21-DAY CYCLE?POWDER FOR SOLUTION FOR INFUSION
     Route: 042
     Dates: start: 20250707
  16. PADCEV [Suspect]
     Active Substance: ENFORTUMAB VEDOTIN-EJFV
     Dosage: 29 MG DAY 1 AND DAY 8 OF 21-DAY CYCLE?POWDER FOR SOLUTION FOR INFUSION
     Route: 042
     Dates: start: 20250718
  17. PADCEV [Suspect]
     Active Substance: ENFORTUMAB VEDOTIN-EJFV
     Dosage: 29 MG DAY 1 AND DAY 8 OF 21-DAY CYCLE?POWDER FOR SOLUTION FOR INFUSION
     Route: 042
     Dates: start: 20250725
  18. KEYTRUDA [Concomitant]
     Active Substance: PEMBROLIZUMAB
     Indication: Transitional cell carcinoma metastatic
     Dosage: UNK?ONGOING
     Route: 065
  19. VIT D [VITAMIN D NOS] [Concomitant]
     Indication: Product used for unknown indication
     Dosage: UNK
     Route: 065
  20. PANTOPRAZOLE [Concomitant]
     Active Substance: PANTOPRAZOLE
     Indication: Product used for unknown indication
     Dosage: 40 MG, DAILY X30 DAYS
     Route: 048
     Dates: end: 20250327
  21. PANTOPRAZOLE [Concomitant]
     Active Substance: PANTOPRAZOLE
     Dosage: 40MG PO DAILY X30 DAYS
     Route: 048
     Dates: start: 202504
  22. PREDNISONE [Concomitant]
     Active Substance: PREDNISONE
     Indication: Product used for unknown indication
     Dosage: 30 MG
     Route: 048
     Dates: end: 202504
  23. PREDNISONE [Concomitant]
     Active Substance: PREDNISONE
     Dosage: 40 MG, DAILY X5 DAYS
     Route: 048
     Dates: start: 202504
  24. PREDNISONE [Concomitant]
     Active Substance: PREDNISONE
     Dosage: 5 MG X5 DAYS
     Route: 048
  25. CALCIUM [Concomitant]
     Active Substance: CALCIUM
     Indication: Product used for unknown indication
     Dosage: UNK
     Route: 065

REACTIONS (33)
  - Weight increased [Unknown]
  - Weight decreased [Unknown]
  - Neuropathy peripheral [Not Recovered/Not Resolved]
  - Hepatic enzyme increased [Not Recovered/Not Resolved]
  - Eye disorder [Not Recovered/Not Resolved]
  - Vision blurred [Not Recovered/Not Resolved]
  - Dry eye [Not Recovered/Not Resolved]
  - Conjunctivitis [Not Recovered/Not Resolved]
  - Mucosal inflammation [Unknown]
  - Alopecia [Unknown]
  - Insomnia [Unknown]
  - Blood pressure systolic increased [Recovering/Resolving]
  - Hypoaesthesia [Recovered/Resolved]
  - Oxygen saturation decreased [Recovered/Resolved]
  - Dry mouth [Not Recovered/Not Resolved]
  - Cognitive disorder [Recovering/Resolving]
  - Paraesthesia [Unknown]
  - Photosensitivity reaction [Unknown]
  - Fatigue [Not Recovered/Not Resolved]
  - Rhinorrhoea [Recovered/Resolved]
  - Lacrimation increased [Recovering/Resolving]
  - Oedema [Unknown]
  - Rash [Not Recovered/Not Resolved]
  - Headache [Recovered/Resolved]
  - Peripheral swelling [Recovering/Resolving]
  - Stomatitis [Recovering/Resolving]
  - Blood pressure diastolic decreased [Unknown]
  - Gingival bleeding [Recovered/Resolved]
  - Oropharyngeal pain [Recovering/Resolving]
  - Neck pain [Not Recovered/Not Resolved]
  - Blood pressure fluctuation [Unknown]
  - Pain [Unknown]
  - Dysphagia [Recovering/Resolving]

NARRATIVE: CASE EVENT DATE: 20250101
